FAERS Safety Report 25279953 (Version 1)
Quarter: 2025Q2

REPORT INFORMATION
  Report Type: Spontaneous
  Country: US (occurrence: US)
  Receive Date: 20250507
  Receipt Date: 20250507
  Transmission Date: 20250717
  Serious: Yes (Other)
  Sender: BRISTOL-MYERS SQUIBB COMPANY
  Company Number: US-BRISTOL-MYERS SQUIBB COMPANY-2025-065923

PATIENT
  Age: 84 Year
  Sex: Male
  Weight: 83.46 kg

DRUGS (2)
  1. ELIQUIS [Suspect]
     Active Substance: APIXABAN
     Indication: Product used for unknown indication
     Route: 048
     Dates: start: 202409
  2. METOPROLOL TARTRATE [Concomitant]
     Active Substance: METOPROLOL TARTRATE
     Indication: Product used for unknown indication

REACTIONS (6)
  - Hemianopia [Unknown]
  - Feeling abnormal [Unknown]
  - Fatigue [Unknown]
  - Back pain [Unknown]
  - Peripheral swelling [Unknown]
  - Hypersomnia [Unknown]

NARRATIVE: CASE EVENT DATE: 20250101
